FAERS Safety Report 20009144 (Version 1)
Quarter: 2021Q4

REPORT INFORMATION
  Report Type: Spontaneous
  Country: US (occurrence: US)
  Receive Date: 20211028
  Receipt Date: 20211028
  Transmission Date: 20220303
  Serious: No
  Sender: FDA-Public Use
  Company Number: US-BAYER-2021A237188

PATIENT
  Age: 73 Year
  Sex: Male

DRUGS (1)
  1. GADAVIST [Suspect]
     Active Substance: GADOBUTROL
     Indication: Magnetic resonance imaging
     Dosage: UNK UNK, ONCE
     Dates: start: 20210924, end: 20210924

REACTIONS (5)
  - Nervous system disorder [None]
  - Anxiety [None]
  - Tremor [None]
  - Dyspnoea [None]
  - Adverse event [None]

NARRATIVE: CASE EVENT DATE: 20210924
